FAERS Safety Report 8125155-7 (Version None)
Quarter: 2012Q1

REPORT INFORMATION
  Report Type: 
  Country: None (occurrence: None)
  Receive Date: 20120209
  Receipt Date: 20120208
  Transmission Date: 20120608
  Serious: Yes (Hospitalization)
  Sender: FDA-Public Use
  Company Number: US-AMGEN-USASP2010004966

PATIENT
  Sex: Male

DRUGS (1)
  1. ARANESP [Suspect]
     Indication: RENAL FAILURE CHRONIC
     Dosage: 100 MUG, Q3WK
     Dates: start: 20080101, end: 20100101

REACTIONS (4)
  - VISUAL ACUITY REDUCED [None]
  - ARTHROPATHY [None]
  - DYSURIA [None]
  - BLOOD PRESSURE INCREASED [None]
